FAERS Safety Report 4561067-3 (Version None)
Quarter: 2005Q1

REPORT INFORMATION
  Report Type: 
  Country: None (occurrence: None)
  Receive Date: 20050126
  Receipt Date: 20041026
  Transmission Date: 20050727
  Serious: No
  Sender: FDA-Public Use
  Company Number: US-BRISTOL-MYERS SQUIBB COMPANY-12745600

PATIENT
  Age: 58 Year
  Sex: Female
  Weight: 100 kg

DRUGS (1)
  1. GLUCOPHAGE [Suspect]
     Indication: DIABETES MELLITUS NON-INSULIN-DEPENDENT
     Dosage: INITIALLY ON 1000 MG IN 2003
     Route: 048
     Dates: start: 20030101, end: 20040501

REACTIONS (1)
  - MENTAL STATUS CHANGES [None]
